FAERS Safety Report 14274074 (Version 1)
Quarter: 2017Q4

REPORT INFORMATION
  Report Type: Spontaneous
  Country: GB (occurrence: GB)
  Receive Date: 20171211
  Receipt Date: 20171211
  Transmission Date: 20180321
  Serious: Yes (Death)
  Sender: FDA-Public Use
  Company Number: GB-OTSUKA-DJ20060294

PATIENT
  Age: 79 Year
  Sex: Female

DRUGS (5)
  1. ABILIFY [Suspect]
     Active Substance: ARIPIPRAZOLE
     Indication: PERSECUTORY DELUSION
     Dosage: 15 MG, UNK
     Route: 048
     Dates: start: 20051228
  2. ASPIRIN. [Concomitant]
     Active Substance: ASPIRIN
     Indication: PRODUCT USED FOR UNKNOWN INDICATION
     Dosage: UNK
     Route: 065
     Dates: start: 20051010
  3. PIPORTIL [Concomitant]
     Active Substance: PIPOTIAZINE
     Indication: PRODUCT USED FOR UNKNOWN INDICATION
     Dosage: UNK
     Route: 065
     Dates: start: 200509
  4. ZYPREXA [Concomitant]
     Active Substance: OLANZAPINE
     Indication: PERSECUTORY DELUSION
     Dosage: UNK
     Route: 065
     Dates: start: 20051224
  5. OLANZAPINE. [Concomitant]
     Active Substance: OLANZAPINE
     Indication: PERSECUTORY DELUSION
     Dosage: UNK
     Route: 065
     Dates: start: 20051202

REACTIONS (2)
  - Left ventricular failure [Fatal]
  - Treatment noncompliance [Unknown]

NARRATIVE: CASE EVENT DATE: 20060118
